FAERS Safety Report 7438283-6 (Version None)
Quarter: 2011Q2

REPORT INFORMATION
  Report Type: 
  Country: None (occurrence: None)
  Receive Date: 20110421
  Receipt Date: 20110421
  Transmission Date: 20111010
  Serious: No
  Sender: FDA-Public Use
  Company Number: None

PATIENT
  Age: 83 Year
  Sex: Female
  Weight: 72.5755 kg

DRUGS (1)
  1. CRESTOR [Suspect]
     Indication: BLOOD CHOLESTEROL ABNORMAL
     Dosage: 1 TABLET DAILY PO
     Route: 048
     Dates: start: 20100514, end: 20100520

REACTIONS (1)
  - HEARING IMPAIRED [None]
